FAERS Safety Report 5108120-3 (Version None)
Quarter: 2006Q3

REPORT INFORMATION
  Report Type: 
  Country: None (occurrence: None)
  Receive Date: 20060919
  Receipt Date: 20060918
  Transmission Date: 20061208
  Serious: Yes (Hospitalization)
  Sender: FDA-Public Use
  Company Number: US-GLAXOSMITHKLINE-A0620538A

PATIENT
  Age: 48 Year
  Sex: Female

DRUGS (4)
  1. LAMICTAL [Suspect]
     Indication: BIPOLAR DISORDER
     Route: 048
     Dates: start: 20060601, end: 20060801
  2. TOPAMAX [Concomitant]
  3. PAXIL [Concomitant]
  4. CLONOPIN [Concomitant]

REACTIONS (13)
  - ALCOHOL POISONING [None]
  - ALCOHOL USE [None]
  - CONTUSION [None]
  - CRYING [None]
  - DEPRESSION [None]
  - INSOMNIA [None]
  - INTENTIONAL OVERDOSE [None]
  - MOOD SWINGS [None]
  - MUSCLE TWITCHING [None]
  - PRURITUS [None]
  - SUICIDAL IDEATION [None]
  - SUICIDE ATTEMPT [None]
  - WEIGHT INCREASED [None]
